FAERS Safety Report 11404730 (Version 2)
Quarter: 2016Q2

REPORT INFORMATION
  Report Type: Report from Study
  Country: US (occurrence: US)
  Receive Date: 20150821
  Receipt Date: 20160505
  Transmission Date: 20160815
  Serious: Yes (Hospitalization)
  Sender: FDA-Public Use
  Company Number: US-ABBVIE-15K-163-1446334-00

PATIENT
  Sex: Female
  Weight: 86.26 kg

DRUGS (3)
  1. HUMIRA [Suspect]
     Active Substance: ADALIMUMAB
     Route: 058
     Dates: start: 201506
  2. HUMIRA [Suspect]
     Active Substance: ADALIMUMAB
     Indication: RHEUMATOID ARTHRITIS
     Route: 058
     Dates: start: 2014, end: 201505
  3. METHOTREXATE [Concomitant]
     Active Substance: METHOTREXATE
     Indication: RHEUMATOID ARTHRITIS
     Dates: end: 201505

REACTIONS (5)
  - Spinal column stenosis [Recovered/Resolved]
  - Abasia [Recovered/Resolved]
  - Drug effect decreased [Not Recovered/Not Resolved]
  - Rheumatoid arthritis [Not Recovered/Not Resolved]
  - Back pain [Recovered/Resolved]

NARRATIVE: CASE EVENT DATE: 2015
